FAERS Safety Report 14930050 (Version 2)
Quarter: 2018Q3

REPORT INFORMATION
  Report Type: Spontaneous
  Country: MK (occurrence: MK)
  Receive Date: 20180523
  Receipt Date: 20180706
  Transmission Date: 20181010
  Serious: Yes (Death, Hospitalization, Other)
  Sender: FDA-Public Use
  Company Number: MK-TAKEDA-2018TUS017655

PATIENT
  Sex: Male

DRUGS (2)
  1. ICLUSIG [Suspect]
     Active Substance: PONATINIB
     Indication: CHRONIC MYELOID LEUKAEMIA
     Dosage: 45 MG, UNK
     Route: 048
     Dates: end: 201804
  2. ICLUSIG [Suspect]
     Active Substance: PONATINIB
     Dosage: 15 MG, UNK
     Route: 048
     Dates: start: 201805

REACTIONS (6)
  - Anaemia [Unknown]
  - Acute kidney injury [Fatal]
  - Hepatotoxicity [Recovered/Resolved]
  - Haemoglobin decreased [Unknown]
  - Chronic kidney disease [Unknown]
  - Anuria [Recovering/Resolving]
